FAERS Safety Report 23628158 (Version 1)
Quarter: 2024Q1

REPORT INFORMATION
  Report Type: Spontaneous
  Country: JP (occurrence: JP)
  Receive Date: 20240313
  Receipt Date: 20240313
  Transmission Date: 20240410
  Serious: Yes (Other)
  Sender: FDA-Public Use
  Company Number: JP-AMGEN-JPNSP2023219179

PATIENT
  Age: 70 Year
  Sex: Female
  Weight: 45 kg

DRUGS (27)
  1. BLINCYTO [Suspect]
     Active Substance: BLINATUMOMAB
     Indication: B precursor type acute leukaemia
     Dosage: 5 MICROGRAM/SQ. METER, QD, DRIP INFUSION
     Route: 042
     Dates: start: 20230613, end: 20230619
  2. BLINCYTO [Suspect]
     Active Substance: BLINATUMOMAB
     Indication: Philadelphia chromosome negative
     Dosage: 15 MICROGRAM/SQ. METER, QD, DRIP INFUSION
     Route: 042
     Dates: start: 20230620, end: 20230711
  3. BLINCYTO [Suspect]
     Active Substance: BLINATUMOMAB
     Dosage: 28 MICROGRAM, QD, DRIP INFUSION
     Route: 042
     Dates: start: 20230725, end: 20230821
  4. BLINCYTO [Suspect]
     Active Substance: BLINATUMOMAB
     Dosage: 28 MICROGRAM, QD, DRIP INFUSION
     Route: 042
     Dates: start: 20230908, end: 20231005
  5. BLINCYTO [Suspect]
     Active Substance: BLINATUMOMAB
     Dosage: 28 MICROGRAM, QD, DRIP INFUSION
     Route: 042
     Dates: start: 20231023, end: 20231116
  6. BLINCYTO [Suspect]
     Active Substance: BLINATUMOMAB
     Dosage: 28 MICROGRAM, QD, DRIP INFUSION
     Route: 042
     Dates: start: 20231204, end: 20231217
  7. ONCOVIN [Suspect]
     Active Substance: VINCRISTINE SULFATE
     Indication: Product used for unknown indication
     Dosage: UNK
     Route: 065
  8. POLYMYXIN B SULFATE [Concomitant]
     Active Substance: POLYMYXIN B SULFATE
     Indication: B precursor type acute leukaemia
     Dosage: 1 DOSAGE FORM, TID
     Dates: start: 202304
  9. POLYMYXIN B SULFATE [Concomitant]
     Active Substance: POLYMYXIN B SULFATE
     Indication: Philadelphia chromosome negative
  10. MIYA-BM [Concomitant]
     Active Substance: CLOSTRIDIUM BUTYRICUM SPORES STRAIN M-55
     Indication: Enterocolitis
     Dosage: 1 DOSAGE FORM, TID
     Dates: start: 202304
  11. SULFAMETHOXAZOLE\TRIMETHOPRIM [Concomitant]
     Active Substance: SULFAMETHOXAZOLE\TRIMETHOPRIM
     Indication: Prophylaxis
     Dosage: 1 DOSAGE FORM, TID
     Dates: start: 202305
  12. LANSOPRAZOLE [Concomitant]
     Active Substance: LANSOPRAZOLE
     Indication: Gastric ulcer
     Dosage: 15 MILLIGRAM, QD
     Dates: start: 202304
  13. ELDECALCITOL [Concomitant]
     Active Substance: ELDECALCITOL
     Indication: Osteoporosis
     Dosage: 0.75 MICROGRAM, QD
     Dates: start: 202308
  14. MAGNESIUM OXIDE [Concomitant]
     Active Substance: MAGNESIUM OXIDE
     Indication: Constipation
     Dosage: 250 MILLIGRAM, TID
     Dates: start: 202304
  15. ALENDRONATE [Concomitant]
     Active Substance: ALENDRONATE SODIUM
     Indication: Osteoporosis
     Dosage: 35 MILLIGRAM, QWK
     Dates: start: 202308
  16. METHOTREXATE [Concomitant]
     Active Substance: METHOTREXATE
     Indication: Acute lymphocytic leukaemia
     Dosage: 5 MILLIGRAM, QD
     Route: 029
     Dates: start: 20230627, end: 20230627
  17. METHOTREXATE [Concomitant]
     Active Substance: METHOTREXATE
     Dosage: 5 MILLIGRAM, QD
     Route: 029
     Dates: start: 20230721, end: 20230721
  18. METHOTREXATE [Concomitant]
     Active Substance: METHOTREXATE
     Dosage: 5 MILLIGRAM, QD
     Route: 029
     Dates: start: 20230905, end: 20230905
  19. METHOTREXATE [Concomitant]
     Active Substance: METHOTREXATE
     Dosage: 5 MILLIGRAM, QD
     Route: 029
     Dates: start: 20231026, end: 20231026
  20. METHOTREXATE [Concomitant]
     Active Substance: METHOTREXATE
     Dosage: 5 MILLIGRAM, QD
     Route: 029
     Dates: start: 20231130, end: 20231130
  21. METHOTREXATE [Concomitant]
     Active Substance: METHOTREXATE
     Dosage: 5 MILLIGRAM, QD
     Route: 029
     Dates: start: 20231226, end: 20231226
  22. DEXAMETHASONE SODIUM PHOSPHATE [Concomitant]
     Active Substance: DEXAMETHASONE PHOSPHATE\DEXAMETHASONE SODIUM PHOSPHATE
     Indication: Acute lymphocytic leukaemia
     Dosage: 3.3 MILLIGRAM, QD
     Route: 029
     Dates: start: 20230627, end: 20230627
  23. DEXAMETHASONE SODIUM PHOSPHATE [Concomitant]
     Active Substance: DEXAMETHASONE PHOSPHATE\DEXAMETHASONE SODIUM PHOSPHATE
     Dosage: 3.3 MILLIGRAM, QD
     Route: 029
     Dates: start: 20230721, end: 20230721
  24. DEXAMETHASONE SODIUM PHOSPHATE [Concomitant]
     Active Substance: DEXAMETHASONE PHOSPHATE\DEXAMETHASONE SODIUM PHOSPHATE
     Dosage: 3.3 MILLIGRAM, QD
     Route: 029
     Dates: start: 20230905, end: 20230905
  25. DEXAMETHASONE SODIUM PHOSPHATE [Concomitant]
     Active Substance: DEXAMETHASONE PHOSPHATE\DEXAMETHASONE SODIUM PHOSPHATE
     Dosage: 3.3 MILLIGRAM, QD
     Route: 029
     Dates: start: 20231026, end: 20231026
  26. DEXAMETHASONE SODIUM PHOSPHATE [Concomitant]
     Active Substance: DEXAMETHASONE PHOSPHATE\DEXAMETHASONE SODIUM PHOSPHATE
     Dosage: 3.3 MILLIGRAM, QD
     Route: 029
     Dates: start: 20231130, end: 20231130
  27. DEXAMETHASONE SODIUM PHOSPHATE [Concomitant]
     Active Substance: DEXAMETHASONE PHOSPHATE\DEXAMETHASONE SODIUM PHOSPHATE
     Dosage: 3.3 MILLIGRAM, QD
     Route: 029
     Dates: start: 20231226, end: 20231226

REACTIONS (3)
  - Neuropathy peripheral [Recovering/Resolving]
  - Neutropenia [Recovered/Resolved]
  - Eczema [Recovered/Resolved]

NARRATIVE: CASE EVENT DATE: 20230601
